FAERS Safety Report 11321454 (Version 1)
Quarter: 2015Q3

REPORT INFORMATION
  Report Type: Spontaneous
  Country: CA (occurrence: CA)
  Receive Date: 20150729
  Receipt Date: 20150729
  Transmission Date: 20151125
  Serious: Yes (Other)
  Sender: FDA-Public Use
  Company Number: CA-PFIZER INC-2015241122

PATIENT
  Age: 69 Year
  Sex: Female

DRUGS (2)
  1. SULFASALAZINE. [Suspect]
     Active Substance: SULFASALAZINE
     Indication: RHEUMATOID ARTHRITIS
     Dosage: 1 G, 2X/DAY
     Dates: start: 20150326, end: 20150622
  2. METHOTREXATE [Concomitant]
     Active Substance: METHOTREXATE
     Indication: RHEUMATOID ARTHRITIS
     Dosage: 25 MG, UNK
     Route: 058
     Dates: start: 20120730

REACTIONS (7)
  - Fatigue [Unknown]
  - Diarrhoea [Unknown]
  - Nausea [Unknown]
  - Dysgeusia [Unknown]
  - Chest pain [Unknown]
  - Abdominal pain [Unknown]
  - Decreased appetite [Unknown]
